FAERS Safety Report 10230408 (Version 1)
Quarter: 2014Q2

REPORT INFORMATION
  Report Type: Spontaneous
  Country: US (occurrence: US)
  Receive Date: 20140611
  Receipt Date: 20140611
  Transmission Date: 20141212
  Serious: Yes (Other)
  Sender: FDA-Public Use
  Company Number: US-INCYTE CORPORATION-2014IN000627

PATIENT
  Age: 65 Year
  Sex: Female

DRUGS (10)
  1. JAKAFI [Suspect]
     Indication: MYELOFIBROSIS
     Dosage: 20 MG, BID
     Route: 048
     Dates: start: 201401
  2. CARVEDILOL [Concomitant]
  3. LEVOTHYROXINE [Concomitant]
  4. ASPIRIN [Concomitant]
     Dosage: 81 MG, UNK
  5. CLOPIDOGREL [Concomitant]
  6. GABAPENTIN [Concomitant]
  7. FOLIC ACID [Concomitant]
  8. CELEBREX [Concomitant]
  9. IMDUR [Concomitant]
  10. SIMVASTATIN [Concomitant]

REACTIONS (2)
  - Anaemia [Unknown]
  - Flatulence [Unknown]
